FAERS Safety Report 6858241-X (Version None)
Quarter: 2010Q3

REPORT INFORMATION
  Report Type: 
  Country: None (occurrence: None)
  Receive Date: 20100719
  Receipt Date: 20080204
  Transmission Date: 20110219
  Serious: Yes (Other)
  Sender: FDA-Public Use
  Company Number: US-PFIZER INC-2008011834

PATIENT
  Sex: Male
  Weight: 73 kg

DRUGS (1)
  1. CHANTIX [Suspect]
     Indication: NICOTINE DEPENDENCE
     Dates: start: 20071201

REACTIONS (5)
  - ABNORMAL DREAMS [None]
  - EYE SWELLING [None]
  - FLATULENCE [None]
  - INSOMNIA [None]
  - SUICIDAL IDEATION [None]
